FAERS Safety Report 15562585 (Version 2)
Quarter: 2018Q4

REPORT INFORMATION
  Report Type: Report from Study
  Country: CA (occurrence: CA)
  Receive Date: 20181029
  Receipt Date: 20181126
  Transmission Date: 20190205
  Serious: Yes (Other)
  Sender: FDA-Public Use
  Company Number: CA-JNJFOC-20181036665

PATIENT
  Age: 39 Year
  Sex: Female

DRUGS (1)
  1. SIMPONI [Suspect]
     Active Substance: GOLIMUMAB
     Indication: ANKYLOSING SPONDYLITIS
     Dosage: STRENGTH = 50 MG
     Route: 058
     Dates: start: 20171028

REACTIONS (6)
  - Product use issue [Unknown]
  - Lower respiratory tract infection [Not Recovered/Not Resolved]
  - Sinusitis [Recovering/Resolving]
  - Pharyngitis [Not Recovered/Not Resolved]
  - Off label use [Unknown]
  - Ear infection [Not Recovered/Not Resolved]

NARRATIVE: CASE EVENT DATE: 20171028
